FAERS Safety Report 5332512-0 (Version None)
Quarter: 2007Q2

REPORT INFORMATION
  Report Type: 
  Country: None (occurrence: None)
  Receive Date: 20070518
  Receipt Date: 20070426
  Transmission Date: 20071010
  Serious: Yes (Disabling)
  Sender: FDA-Public Use
  Company Number: STI-2006-00735

PATIENT
  Age: 29 Year
  Sex: Female

DRUGS (2)
  1. DUAC [Suspect]
     Indication: ACNE
     Route: 061
     Dates: start: 20060927, end: 20060928
  2. ERYTHROMYCIN [Concomitant]

REACTIONS (2)
  - ADVERSE DRUG REACTION [None]
  - DERMATITIS ALLERGIC [None]
